FAERS Safety Report 23933565 (Version 3)
Quarter: 2025Q2

REPORT INFORMATION
  Report Type: Spontaneous
  Country: JP (occurrence: JP)
  Receive Date: 20240603
  Receipt Date: 20250527
  Transmission Date: 20250716
  Serious: Yes (Death, Other)
  Sender: GILEAD
  Company Number: JP-GILEAD-2024-0675117

PATIENT
  Age: 79 Year
  Sex: Male
  Weight: 62.5 kg

DRUGS (10)
  1. EPCLUSA [Suspect]
     Active Substance: SOFOSBUVIR\VELPATASVIR
     Indication: Hepatitis C
     Dosage: 1 DOSAGE FORM, QD
     Route: 048
     Dates: start: 20240324, end: 20240505
  2. EPCLUSA [Suspect]
     Active Substance: SOFOSBUVIR\VELPATASVIR
     Indication: Hepatic cirrhosis
  3. LACTULOSE [Concomitant]
     Active Substance: LACTULOSE
     Dosage: 30 ML, TID
  4. URSODIOL [Concomitant]
     Active Substance: URSODIOL
     Dosage: 3 DOSAGE FORM, TID
  5. MIYA-BM [Concomitant]
     Active Substance: CLOSTRIDIUM BUTYRICUM SPORES STRAIN M-55
     Dosage: 3 DOSAGE FORM, TID
  6. AMLODIPINE BESYLATE\AZILSARTAN [Concomitant]
     Active Substance: AMLODIPINE BESYLATE\AZILSARTAN
     Dosage: 1 DOSAGE FORM, QD
  7. ZINC ACETATE DIHYDRATE [Concomitant]
     Dosage: 2 DOSAGE FORM, BID
  8. LEVOCARNITINE FF [Concomitant]
     Dosage: 2 DOSAGE FORM, BID
  9. LIVACT [ISOLEUCINE;LEUCINE;VALINE] [Concomitant]
     Dosage: 2 DOSAGE FORM, BID
  10. ALBUMIN HUMAN [Concomitant]
     Active Substance: ALBUMIN HUMAN

REACTIONS (8)
  - Hepatic failure [Fatal]
  - Hepatorenal syndrome [Unknown]
  - Gastrointestinal haemorrhage [Unknown]
  - Respiratory failure [Unknown]
  - Pulmonary oedema [Unknown]
  - Blood potassium increased [Unknown]
  - Pleural effusion [Unknown]
  - General physical health deterioration [Unknown]

NARRATIVE: CASE EVENT DATE: 20240401
